FAERS Safety Report 4566145-0 (Version None)
Quarter: 2005Q1

REPORT INFORMATION
  Report Type: 
  Country: None (occurrence: None)
  Receive Date: 20050201
  Receipt Date: 20050128
  Transmission Date: 20050727
  Serious: Yes (Death, Hospitalization)
  Sender: FDA-Public Use
  Company Number: NO-RB-1290-2005

PATIENT
  Age: 25 Year
  Sex: Male

DRUGS (3)
  1. BUPRENORPHINE HCL [Suspect]
     Indication: DRUG DEPENDENCE
     Route: 060
     Dates: start: 20040201, end: 20040901
  2. PIROXICAM [Concomitant]
     Indication: DRUG USE FOR UNKNOWN INDICATION
     Dosage: UNKNOWN DOSAGE
     Route: 065
     Dates: start: 20040916
  3. BUPRENORPHINE HCL [Concomitant]
     Dosage: UNKNOWN DOSAGE
     Route: 060
     Dates: end: 20040201

REACTIONS (10)
  - ALANINE AMINOTRANSFERASE INCREASED [None]
  - ASPIRATION [None]
  - BACK PAIN [None]
  - HEPATIC CIRRHOSIS [None]
  - HEPATIC FAILURE [None]
  - HEPATITIS TOXIC [None]
  - JAUNDICE [None]
  - OESOPHAGEAL HAEMORRHAGE [None]
  - PORTAL HYPERTENSION [None]
  - RESPIRATORY TRACT INFECTION [None]
